FAERS Safety Report 8058840-6 (Version None)
Quarter: 2012Q1

REPORT INFORMATION
  Report Type: 
  Country: None (occurrence: None)
  Receive Date: 20120120
  Receipt Date: 20111130
  Transmission Date: 20120608
  Serious: No
  Sender: FDA-Public Use
  Company Number: US-BRISTOL-MYERS SQUIBB COMPANY-16259301

PATIENT
  Age: 59 Year
  Sex: Male
  Weight: 93 kg

DRUGS (1)
  1. YERVOY [Suspect]
     Indication: MALIGNANT MELANOMA
     Dates: start: 20110101

REACTIONS (9)
  - NAUSEA [None]
  - LOCALISED OEDEMA [None]
  - NECK PAIN [None]
  - WEIGHT DECREASED [None]
  - CONSTIPATION [None]
  - FEELING HOT [None]
  - SKIN DISORDER [None]
  - HEADACHE [None]
  - BACK PAIN [None]
